FAERS Safety Report 8908681 (Version 1)
Quarter: 2012Q4

REPORT INFORMATION
  Report Type: 
  Country: US (occurrence: US)
  Receive Date: 20121114
  Receipt Date: 20121114
  Transmission Date: 20130627
  Serious: No
  Sender: FDA-Public Use
  Company Number: US-PFIZER INC-2012284159

PATIENT
  Age: 57 Year
  Sex: Female
  Weight: 90.7 kg

DRUGS (2)
  1. LYRICA [Suspect]
     Indication: NEUROPATHY
     Dosage: 75 mg, 2x/day
     Route: 048
     Dates: start: 20121023
  2. LYRICA [Suspect]
     Indication: PAIN

REACTIONS (1)
  - Foreign body [Unknown]
